FAERS Safety Report 12155214 (Version 1)
Quarter: 2016Q1

REPORT INFORMATION
  Report Type: Spontaneous
  Country: US (occurrence: None)
  Receive Date: 20160304
  Receipt Date: 20160304
  Transmission Date: 20160526
  Serious: Yes (Hospitalization)
  Sender: FDA-Public Use
  Company Number: None

PATIENT
  Age: 58 Year
  Sex: Male
  Weight: 76.8 kg

DRUGS (1)
  1. RIBAVIRIN. [Suspect]
     Active Substance: RIBAVIRIN
     Indication: HEPATITIS C
     Route: 048
     Dates: start: 20150816, end: 20151009

REACTIONS (8)
  - Malaise [None]
  - Myalgia [None]
  - Neutropenia [None]
  - Hyperhidrosis [None]
  - Leukopenia [None]
  - Pyrexia [None]
  - Febrile neutropenia [None]
  - Viral infection [None]

NARRATIVE: CASE EVENT DATE: 20151005
